FAERS Safety Report 11327437 (Version 1)
Quarter: 2015Q3

REPORT INFORMATION
  Report Type: Spontaneous
  Country: US (occurrence: US)
  Receive Date: 20150731
  Receipt Date: 20150731
  Transmission Date: 20151125
  Serious: Yes (Other)
  Sender: FDA-Public Use
  Company Number: US-PFIZER INC-2015251788

PATIENT
  Age: 52 Year
  Sex: Female
  Weight: 58.96 kg

DRUGS (14)
  1. AMOXICILLIN - POTASSIUM CLAVULANATE [Concomitant]
     Dosage: [AMOXICILLIN 875MG- POTASSIUM CLAVULANATE 125MG], UNK
  2. IBUPROFEN. [Concomitant]
     Active Substance: IBUPROFEN
     Dosage: 800 MG, 3X/DAY
     Route: 048
  3. VENLAFAXINE ER [Concomitant]
     Active Substance: VENLAFAXINE HYDROCHLORIDE
     Dosage: 75 MG, UNK
  4. LEVOFLOXACIN. [Concomitant]
     Active Substance: LEVOFLOXACIN
     Dosage: 500 MG, UNK
  5. METHYLPREDNISOLONE. [Concomitant]
     Active Substance: METHYLPREDNISOLONE
     Dosage: 4 MG, UNK
  6. ONDANSETRON [Concomitant]
     Active Substance: ONDANSETRON
     Dosage: 4 MG, UNK
  7. FENOFIBRATE. [Concomitant]
     Active Substance: FENOFIBRATE
     Dosage: 160 MG, UNK
  8. ZOLPIDEM [Concomitant]
     Active Substance: ZOLPIDEM\ZOLPIDEM TARTRATE
     Indication: SLEEP DISORDER
     Dosage: 5 MG, 1X/DAY (EVERY NIGHT AT BEDTIME AS NEEDED)
     Route: 048
  9. TRAMADOL. [Concomitant]
     Active Substance: TRAMADOL
     Dosage: 50 MG, UNK
  10. TRAZODONE [Concomitant]
     Active Substance: TRAZODONE HYDROCHLORIDE
     Dosage: 100 MG, 2X/DAY
  11. LYRICA [Suspect]
     Active Substance: PREGABALIN
     Dosage: 50 MG, 3X/DAY
     Route: 048
  12. DOXYCYCLINE HYCLATE. [Concomitant]
     Active Substance: DOXYCYCLINE HYCLATE
     Dosage: 100 MG, UNK
  13. VITAMIN D2 [Concomitant]
     Active Substance: ERGOCALCIFEROL
     Dosage: 50000 IU, UNK
  14. HYDROCODONE BITARTRATE AND ACETAMINOPHEN [Concomitant]
     Active Substance: ACETAMINOPHEN\HYDROCODONE BITARTRATE
     Dosage: [HYDROCODONE 10MG- ACETAMINOPHEN 325MG], 4X/DAY AS NEEDED
     Route: 048

REACTIONS (25)
  - Intentional product misuse [Unknown]
  - Neck pain [Unknown]
  - Skin lesion [Unknown]
  - Arthralgia [Unknown]
  - Condition aggravated [Unknown]
  - Fatigue [Unknown]
  - Ear pain [Unknown]
  - Anxiety [Unknown]
  - Spinal pain [Unknown]
  - Blood pressure increased [Unknown]
  - Motor dysfunction [Unknown]
  - Pain [Unknown]
  - Musculoskeletal pain [Unknown]
  - Rash [Unknown]
  - Sensory loss [Unknown]
  - Radiculopathy [Unknown]
  - Myalgia [Unknown]
  - Immobile [Unknown]
  - Headache [Unknown]
  - Rhinalgia [Unknown]
  - Tenderness [Unknown]
  - Hypoaesthesia [Unknown]
  - Asthenia [Unknown]
  - Oropharyngeal pain [Unknown]
  - Nail disorder [Unknown]
